FAERS Safety Report 17265509 (Version 1)
Quarter: 2020Q1

REPORT INFORMATION
  Report Type: Spontaneous
  Country: US (occurrence: US)
  Receive Date: 20200114
  Receipt Date: 20200114
  Transmission Date: 20200409
  Serious: No
  Sender: FDA-Public Use
  Company Number: US-BIOFRONTERA-000629

PATIENT
  Age: 12 Year
  Sex: Female

DRUGS (1)
  1. AMELUZ [Suspect]
     Active Substance: AMINOLEVULINIC ACID HYDROCHLORIDE
     Indication: BASAL CELL NAEVUS SYNDROME
     Route: 061
     Dates: start: 20191229, end: 20191229

REACTIONS (4)
  - Application site reaction [Unknown]
  - Off label use [Recovered/Resolved]
  - Application site urticaria [Recovered/Resolved]
  - Application site pruritus [Recovered/Resolved]

NARRATIVE: CASE EVENT DATE: 20191229
